FAERS Safety Report 16996605 (Version 1)
Quarter: 2019Q4

REPORT INFORMATION
  Report Type: Spontaneous
  Country: US (occurrence: US)
  Receive Date: 20191105
  Receipt Date: 20191105
  Transmission Date: 20200122
  Serious: No
  Sender: FDA-Public Use
  Company Number: US-SA-2019SA305409

PATIENT
  Age: 63 Year
  Sex: Female
  Weight: 86.17 kg

DRUGS (1)
  1. DUPIXENT [Suspect]
     Active Substance: DUPILUMAB
     Indication: NASAL POLYPS
     Dosage: 300 MG, QOW
     Route: 058
     Dates: start: 20191004

REACTIONS (2)
  - Injection site pruritus [Unknown]
  - Injection site erythema [Unknown]

NARRATIVE: CASE EVENT DATE: 201910
